FAERS Safety Report 16956559 (Version 10)
Quarter: 2020Q1

REPORT INFORMATION
  Report Type: Spontaneous
  Country: US (occurrence: US)
  Receive Date: 20191024
  Receipt Date: 20200225
  Transmission Date: 20200409
  Serious: Yes (Other)
  Sender: FDA-Public Use
  Company Number: US-DSJP-DSU-2019-139235

PATIENT

DRUGS (2)
  1. TURALIO [Suspect]
     Active Substance: PEXIDARTINIB HYDROCHLORIDE
     Dosage: 200 MG QAM AND 400 MG QPM
     Route: 048
     Dates: start: 20191001
  2. TURALIO [Suspect]
     Active Substance: PEXIDARTINIB HYDROCHLORIDE
     Indication: SYNOVITIS
     Dosage: 200 MG
     Route: 048
     Dates: start: 20190927

REACTIONS (33)
  - Dehydration [Unknown]
  - Drug intolerance [Unknown]
  - Cognitive disorder [Unknown]
  - Visual impairment [Unknown]
  - Diarrhoea [Unknown]
  - Chest discomfort [Unknown]
  - Chromaturia [Unknown]
  - Burning sensation [Unknown]
  - Dizziness [Unknown]
  - Fatigue [Unknown]
  - Vertigo [Unknown]
  - Nervous system disorder [Unknown]
  - Glassy eyes [Unknown]
  - Confusional state [Unknown]
  - Amnesia [Unknown]
  - Dyspnoea [Unknown]
  - Pruritus [Unknown]
  - Cognitive disorder [Unknown]
  - Memory impairment [Unknown]
  - Dry skin [Unknown]
  - Dry mouth [Unknown]
  - Periorbital swelling [Unknown]
  - Hair colour changes [Unknown]
  - Taste disorder [Unknown]
  - Thyroid disorder [Unknown]
  - Off label use [Unknown]
  - Knee arthroplasty [Unknown]
  - Blood pressure increased [Unknown]
  - Tinnitus [Unknown]
  - Arthralgia [Unknown]
  - Libido decreased [Unknown]
  - Rash [Unknown]
  - Back pain [Unknown]

NARRATIVE: CASE EVENT DATE: 2019
